FAERS Safety Report 13159449 (Version 3)
Quarter: 2021Q1

REPORT INFORMATION
  Report Type: Spontaneous
  Country: US (occurrence: US)
  Receive Date: 20170127
  Receipt Date: 20210301
  Transmission Date: 20210419
  Serious: Yes (Other)
  Sender: FDA-Public Use
  Company Number: US-AMGEN-USASP2017009280

PATIENT
  Age: 50 Year
  Sex: Female

DRUGS (1)
  1. ETANERCEPT [Suspect]
     Active Substance: ETANERCEPT
     Indication: PRODUCT USED FOR UNKNOWN INDICATION
     Dosage: 25 MILLIGRAM, 2 TIMES/WK
     Route: 065

REACTIONS (4)
  - Erythema [Recovered/Resolved]
  - Butterfly rash [Recovered/Resolved]
  - Pleuritic pain [Recovered/Resolved]
  - Systemic lupus erythematosus [Unknown]
